FAERS Safety Report 25984484 (Version 1)
Quarter: 2025Q4

REPORT INFORMATION
  Report Type: Spontaneous
  Country: EU (occurrence: EU)
  Receive Date: 20251031
  Receipt Date: 20251031
  Transmission Date: 20260118
  Serious: Yes (Death)
  Sender: ANI
  Company Number: EU-ANIPHARMA-2025-FR-000135

PATIENT
  Age: 25 Year
  Sex: Male
  Weight: 86 kg

DRUGS (5)
  1. ARIMIDEX [Suspect]
     Active Substance: ANASTROZOLE
     Indication: Product used for unknown indication
     Dosage: 1MG QW / 1MG 3X/SEM
     Route: 048
     Dates: start: 20250127, end: 20250601
  2. TESTOSTERONE ENANTHATE [Suspect]
     Active Substance: TESTOSTERONE ENANTHATE
     Dosage: 125 MG 0.5 ML 1X TS LES 3 JRS; 30 MG 0.1 ML LU, MA, MER, VE, SA
     Route: 030
     Dates: start: 20250602, end: 20250615
  3. METHENOLONE [Suspect]
     Active Substance: METHENOLONE
     Dosage: 100 MG 0.5 MG 1X TS LES 3 JRS
     Route: 030
     Dates: start: 20240805, end: 20241215
  4. NANDROLONE [Suspect]
     Active Substance: NANDROLONE
     Dosage: 50 MG 0.5ML 1X TS LES 3 JRS;
     Route: 030
     Dates: start: 20250127, end: 20250601
  5. DROMOSTANOLONE [Suspect]
     Active Substance: DROMOSTANOLONE
     Dosage: 100 MG 1ML 3X/SEM; 20 MG 0.2ML 5X/SEM
     Route: 030
     Dates: start: 20250602, end: 20250615

REACTIONS (1)
  - Bile duct adenocarcinoma [Fatal]

NARRATIVE: CASE EVENT DATE: 20250624
